FAERS Safety Report 7281679-6 (Version None)
Quarter: 2010Q4

REPORT INFORMATION
  Report Type: 
  Country: None (occurrence: None)
  Receive Date: 20101221
  Receipt Date: 20100322
  Transmission Date: 20110411
  Serious: Yes (Other)
  Sender: FDA-Public Use
  Company Number: WAES 1003USA03549

PATIENT
  Age: 62 Year
  Sex: Female
  Weight: 54.4316 kg

DRUGS (5)
  1. JANUVIA [Suspect]
     Indication: DIABETES MELLITUS
     Dosage: 100 MG/DAILY/PO
     Route: 048
     Dates: start: 20100215, end: 20100312
  2. ALTOPREV [Concomitant]
  3. CALCIUM [Concomitant]
  4. METFORMIN [Concomitant]
  5. MULTIVITAMIN [Concomitant]

REACTIONS (3)
  - LIP SWELLING [None]
  - RASH MACULAR [None]
  - URTICARIA [None]
